FAERS Safety Report 9733460 (Version 1)
Quarter: 2013Q4

REPORT INFORMATION
  Report Type: Spontaneous
  Country: US (occurrence: None)
  Receive Date: 20131204
  Receipt Date: 20131204
  Transmission Date: 20140711
  Serious: No
  Sender: FDA-Public Use
  Company Number: None

PATIENT
  Age: 23 Year
  Sex: Female

DRUGS (1)
  1. FENTANYL [Suspect]
     Dosage: PATCH
     Route: 061
     Dates: start: 20131105

REACTIONS (3)
  - Withdrawal syndrome [None]
  - Drug effect decreased [None]
  - Product adhesion issue [None]
